FAERS Safety Report 19583295 (Version 2)
Quarter: 2021Q3

REPORT INFORMATION
  Report Type: Spontaneous
  Country: FR (occurrence: FR)
  Receive Date: 20210720
  Receipt Date: 20210729
  Transmission Date: 20211014
  Serious: Yes (Hospitalization)
  Sender: FDA-Public Use
  Company Number: FR-ELI_LILLY_AND_COMPANY-FR202107006207

PATIENT
  Age: 32 Year
  Sex: Male

DRUGS (10)
  1. BUPRENORPHINE. [Suspect]
     Active Substance: BUPRENORPHINE
     Indication: ANXIETY
     Dosage: UNK, UNKNOWN
     Route: 065
  2. BUPRENORPHINE. [Suspect]
     Active Substance: BUPRENORPHINE
     Indication: DEPRESSION
  3. ZOPICLONE [Suspect]
     Active Substance: ZOPICLONE
     Indication: ANXIETY
     Dosage: UNK, UNKNOWN
     Route: 065
  4. BACLOFEN. [Suspect]
     Active Substance: BACLOFEN
     Indication: ANXIETY
     Dosage: UNK, UNKNOWN
     Route: 065
  5. DIAZEPAM. [Suspect]
     Active Substance: DIAZEPAM
     Indication: DEPRESSION
  6. BACLOFEN. [Suspect]
     Active Substance: BACLOFEN
     Indication: DEPRESSION
  7. FLUOXETINE [Suspect]
     Active Substance: FLUOXETINE HYDROCHLORIDE
     Indication: DEPRESSION
     Dosage: UNK, UNKNOWN
     Route: 065
  8. DIAZEPAM. [Suspect]
     Active Substance: DIAZEPAM
     Indication: ANXIETY
     Dosage: UNK, UNKNOWN
     Route: 065
  9. FLUOXETINE [Suspect]
     Active Substance: FLUOXETINE HYDROCHLORIDE
     Indication: ANXIETY
  10. ZOPICLONE [Suspect]
     Active Substance: ZOPICLONE
     Indication: DEPRESSION

REACTIONS (8)
  - Agitation [Recovered/Resolved]
  - Hallucination [Recovered/Resolved]
  - Poisoning [Recovered/Resolved]
  - Incoherent [Unknown]
  - Suicide attempt [Unknown]
  - Logorrhoea [Unknown]
  - Disorientation [Recovered/Resolved]
  - Altered state of consciousness [Recovered/Resolved]
